FAERS Safety Report 7240958-9 (Version None)
Quarter: 2011Q1

REPORT INFORMATION
  Report Type: 
  Country: None (occurrence: None)
  Receive Date: 20110124
  Receipt Date: 20110119
  Transmission Date: 20110831
  Serious: Yes (Life-Threatening, Hospitalization)
  Sender: FDA-Public Use
  Company Number: PHHY2010FR81942

PATIENT
  Sex: Male
  Weight: 78 kg

DRUGS (5)
  1. STATIN [Concomitant]
  2. ANTI-ANGINAL TREATMENT [Concomitant]
  3. BETA BLOCKING AGENTS [Concomitant]
  4. ATENOLOL [Concomitant]
     Indication: HYPERTENSION
     Dosage: 50 MG, QD
  5. RASILEZ [Suspect]
     Indication: HYPERTENSION
     Dosage: ONCE A DAY (TAKEN SINGLE DOSE IN THE EVENING)
     Route: 048
     Dates: start: 20101126

REACTIONS (7)
  - NECROSIS OF ARTERY [None]
  - NAUSEA [None]
  - PAIN IN EXTREMITY [None]
  - CHOKING [None]
  - VOMITING [None]
  - ACUTE MYOCARDIAL INFARCTION [None]
  - PAIN IN JAW [None]
